FAERS Safety Report 18549151 (Version 1)
Quarter: 2020Q4

REPORT INFORMATION
  Report Type: Other
  Country: US (occurrence: US)
  Receive Date: 20201126
  Receipt Date: 20201126
  Transmission Date: 20210114
  Serious: Yes (Hospitalization, Other)
  Sender: FDA-Public Use
  Company Number: US-NUVO PHARMACEUTICALS INC-2096336

PATIENT
  Age: 70 Year
  Sex: Female

DRUGS (9)
  1. CHLORDIAZEPOXIDE. [Suspect]
     Active Substance: CHLORDIAZEPOXIDE
     Route: 065
  2. QUETIAPINE. [Concomitant]
     Active Substance: QUETIAPINE
     Route: 065
  3. DEXMEDETOMIDINE. [Suspect]
     Active Substance: DEXMEDETOMIDINE
     Route: 065
  4. HYDROMORPHONE HCL [Suspect]
     Active Substance: HYDROMORPHONE HYDROCHLORIDE
     Route: 065
  5. MELATONIN [Concomitant]
     Active Substance: MELATONIN
     Route: 065
  6. MIDAZOLAM. [Suspect]
     Active Substance: MIDAZOLAM
     Route: 065
  7. PROPOFOL. [Suspect]
     Active Substance: PROPOFOL
     Route: 065
  8. KETAMINE HYDROCHLORIDE. [Suspect]
     Active Substance: KETAMINE HYDROCHLORIDE
     Route: 065
  9. OXYCODONE HYDROCHLORIDE. [Suspect]
     Active Substance: OXYCODONE HYDROCHLORIDE
     Indication: AGITATION
     Route: 065

REACTIONS (2)
  - Delirium [Recovered/Resolved]
  - Condition aggravated [Recovered/Resolved]
